FAERS Safety Report 5821262-X (Version None)
Quarter: 2008Q3

REPORT INFORMATION
  Report Type: 
  Country: None (occurrence: None)
  Receive Date: 20080722
  Receipt Date: 20080722
  Transmission Date: 20090109
  Serious: No
  Sender: FDA-Public Use
  Company Number: None

PATIENT
  Sex: Female
  Weight: 51.2565 kg

DRUGS (1)
  1. CIPRO [Suspect]
     Indication: URINARY TRACT INFECTION
     Dosage: 500MG 1X/DAY PO  2 OF 14 DOSES TAKEN
     Route: 048
     Dates: start: 20080718, end: 20080719

REACTIONS (1)
  - ARTHRALGIA [None]
